FAERS Safety Report 7593195-2 (Version None)
Quarter: 2011Q3

REPORT INFORMATION
  Report Type: 
  Country: None (occurrence: None)
  Receive Date: 20110706
  Receipt Date: 20110630
  Transmission Date: 20111222
  Serious: Yes (Death)
  Sender: FDA-Public Use
  Company Number: US-GILEAD-2011-0037097

PATIENT
  Sex: Male

DRUGS (3)
  1. VENTAVIS [Concomitant]
  2. LETAIRIS [Suspect]
     Indication: DRUG ABUSE
  3. LETAIRIS [Suspect]
     Indication: PULMONARY HYPERTENSION
     Route: 048
     Dates: end: 20110301

REACTIONS (1)
  - DEATH [None]
